FAERS Safety Report 9068277 (Version 1)
Quarter: 2013Q1

REPORT INFORMATION
  Report Type: Spontaneous
  Country: FR (occurrence: FR)
  Receive Date: 20130206
  Receipt Date: 20130206
  Transmission Date: 20140127
  Serious: Yes (Other)
  Sender: FDA-Public Use
  Company Number: FR-JNJFOC-20130201068

PATIENT
  Age: 62 Year
  Sex: Male

DRUGS (8)
  1. XARELTO [Suspect]
     Indication: ATRIAL FIBRILLATION
     Route: 048
     Dates: start: 201212
  2. XARELTO [Suspect]
     Indication: CEREBROVASCULAR ACCIDENT PROPHYLAXIS
     Route: 048
     Dates: start: 201212
  3. BISOPROLOL [Concomitant]
     Route: 065
  4. PROCORALAN [Concomitant]
     Route: 065
  5. AMIODARONE [Concomitant]
     Route: 065
     Dates: start: 201301
  6. KARDEGIC [Concomitant]
     Route: 065
  7. PARIET [Concomitant]
     Route: 065
  8. INEGY [Concomitant]
     Route: 065

REACTIONS (2)
  - Chromaturia [Unknown]
  - Abdominal pain upper [Unknown]
